FAERS Safety Report 6380951-1 (Version None)
Quarter: 2009Q3

REPORT INFORMATION
  Report Type: 
  Country: None (occurrence: None)
  Receive Date: 20090929
  Receipt Date: 20090917
  Transmission Date: 20100115
  Serious: Yes (Death, Other)
  Sender: FDA-Public Use
  Company Number: CA-TYCO HEALTHCARE/MALLINCKRODT-T200901765

PATIENT
  Age: 2 Year
  Sex: Male
  Weight: 13 kg

DRUGS (3)
  1. MEPERIDINE HCL [Suspect]
     Dosage: 10 MG, SINGLE
     Route: 030
  2. DIMENHYDRINATE [Suspect]
     Dosage: 12.5 MG, SINGLE
     Route: 030
  3. CODEINE [Suspect]
     Dosage: 10 - 12.5 MG Q4 TO 6 HOURS AS NEEDED
     Route: 048

REACTIONS (3)
  - CARDIOPULMONARY FAILURE [None]
  - PYREXIA [None]
  - WHEEZING [None]
